FAERS Safety Report 6594452-9 (Version None)
Quarter: 2010Q1

REPORT INFORMATION
  Report Type: 
  Country: None (occurrence: None)
  Receive Date: 20100218
  Receipt Date: 20100218
  Transmission Date: 20100710
  Serious: Yes (Hospitalization)
  Sender: FDA-Public Use
  Company Number: None

PATIENT
  Age: 63 Year
  Sex: Male
  Weight: 112 kg

DRUGS (2)
  1. WARFARIN SODIUM [Suspect]
     Indication: CARDIOVASCULAR DISORDER
     Dosage: 10 MG EVERY DAY PO
     Route: 048
     Dates: start: 20090911, end: 20091201
  2. WARFARIN SODIUM [Suspect]
     Indication: SURGERY
     Dosage: 10 MG EVERY DAY PO
     Route: 048
     Dates: start: 20090911, end: 20091201

REACTIONS (3)
  - EPISTAXIS [None]
  - HAEMOPTYSIS [None]
  - RECTAL HAEMORRHAGE [None]
